FAERS Safety Report 7060632-1 (Version None)
Quarter: 2010Q4

REPORT INFORMATION
  Report Type: 
  Country: None (occurrence: None)
  Receive Date: 20101025
  Receipt Date: 20101013
  Transmission Date: 20110411
  Serious: Yes (Hospitalization, Other)
  Sender: FDA-Public Use
  Company Number: US-ELI_LILLY_AND_COMPANY-US201002003428

PATIENT
  Sex: Male
  Weight: 115.19 kg

DRUGS (18)
  1. BYETTA [Suspect]
     Dosage: UNK, UNKNOWN
     Route: 065
     Dates: start: 20070101, end: 20090101
  2. BYETTA [Suspect]
     Dosage: UNK, UNKNOWN
     Route: 065
     Dates: start: 20060126, end: 20090305
  3. BYETTA [Suspect]
     Dosage: 10 UG, 2/D AS NEEDED
     Route: 058
  4. HUMALOG [Concomitant]
     Indication: TYPE 1 DIABETES MELLITUS
  5. NADOLOL [Concomitant]
     Indication: HYPERTENSION
     Dosage: 20 MG, DAILY (1/D)
     Dates: start: 20080101
  6. WELCHOL [Concomitant]
     Indication: BLOOD CHOLESTEROL
     Dates: start: 20080101
  7. ZETIA [Concomitant]
     Indication: BLOOD CHOLESTEROL
     Dates: start: 20080101
  8. TYLENOL (CAPLET) [Concomitant]
  9. CRESTOR [Concomitant]
     Dosage: 5 MG, DAILY (1/D)
  10. LOVAZA [Concomitant]
  11. PROAIR HFA [Concomitant]
     Dosage: UNK, EVERY 4 HRS AS NEEDED
  12. QUININE [Concomitant]
     Dosage: 324 MG, DAILY (1/D)
  13. NITROSTAT [Concomitant]
     Dosage: 0.4 MG, AS NEEDED
     Route: 060
  14. PRILOSEC [Concomitant]
     Dosage: 20 MG, 2/D
  15. LEVOXYL [Concomitant]
     Dosage: 200 UG, QOD
  16. COZAAR [Concomitant]
     Dosage: 50 MG, DAILY (1/D)
  17. NIACIN [Concomitant]
     Dosage: 1000 MG, EACH EVENING
  18. LYRICA [Concomitant]
     Dosage: 75 MG, 2/D

REACTIONS (4)
  - OFF LABEL USE [None]
  - PANCREATIC CARCINOMA [None]
  - PANCREATITIS [None]
  - PANCREATITIS CHRONIC [None]
